FAERS Safety Report 9033526 (Version 1)
Quarter: 2013Q1

REPORT INFORMATION
  Report Type: Report from Study
  Country: SG (occurrence: SG)
  Receive Date: 20130128
  Receipt Date: 20130128
  Transmission Date: 20140127
  Serious: Yes (Hospitalization, Other)
  Sender: FDA-Public Use
  Company Number: SG-BAYER-2013-008595

PATIENT
  Sex: 0

DRUGS (5)
  1. ASPIRIN [Suspect]
     Indication: GASTRIC CANCER
  2. PREDNISOLONE [Interacting]
     Indication: GASTRIC CANCER
  3. ETORICOXIB [Suspect]
  4. OMEPRAZOLE [Concomitant]
  5. MAGNESIUM TRISILICATE [Concomitant]

REACTIONS (5)
  - Abdominal pain [None]
  - Decreased appetite [None]
  - Nausea [None]
  - Vomiting [None]
  - Gastric cancer [None]
